FAERS Safety Report 7957436-1 (Version None)
Quarter: 2011Q4

REPORT INFORMATION
  Report Type: 
  Country: None (occurrence: None)
  Receive Date: 20111205
  Receipt Date: 20111130
  Transmission Date: 20120403
  Serious: Yes (Death, Congenital Anomaly, Other)
  Sender: FDA-Public Use
  Company Number: US-PFIZER INC-2011212250

PATIENT
  Sex: Female
  Weight: 1.6 kg

DRUGS (1)
  1. ZOLOFT [Suspect]
     Dosage: UNK
     Route: 064

REACTIONS (15)
  - JAUNDICE [None]
  - GENERALISED OEDEMA [None]
  - CARDIOMEGALY [None]
  - INTESTINAL FISTULA [None]
  - RESPIRATORY FAILURE [None]
  - SEPSIS [None]
  - GASTROSCHISIS [None]
  - CARDIAC MURMUR [None]
  - SINUS TACHYCARDIA [None]
  - PNEUMONIA [None]
  - CYANOSIS [None]
  - ATELECTASIS [None]
  - NEONATAL RESPIRATORY DISTRESS SYNDROME [None]
  - BRONCHOPULMONARY DYSPLASIA [None]
  - FOETAL EXPOSURE DURING PREGNANCY [None]
